FAERS Safety Report 5609327-9 (Version None)
Quarter: 2008Q1

REPORT INFORMATION
  Report Type: 
  Country: None (occurrence: None)
  Receive Date: 20080131
  Receipt Date: 20080123
  Transmission Date: 20080703
  Serious: Yes (Other)
  Sender: FDA-Public Use
  Company Number: US-ASTRAZENECA-2007UW24432

PATIENT
  Age: 33 Year
  Sex: Female
  Weight: 63.6 kg

DRUGS (5)
  1. RHINOCORT [Suspect]
     Route: 045
  2. ZYRTEC [Concomitant]
  3. VITAMINS [Concomitant]
  4. FOLIC ACID [Concomitant]
  5. IBUPROFEN [Concomitant]

REACTIONS (4)
  - DRUG EXPOSURE DURING PREGNANCY [None]
  - NERVE INJURY [None]
  - PAIN [None]
  - SKIN LACERATION [None]
